FAERS Safety Report 14779436 (Version 1)
Quarter: 2018Q2

REPORT INFORMATION
  Report Type: Spontaneous
  Country: US (occurrence: US)
  Receive Date: 20180419
  Receipt Date: 20180419
  Transmission Date: 20180711
  Serious: No
  Sender: FDA-Public Use
  Company Number: US-BAYER-2018-069814

PATIENT
  Age: 70 Year
  Sex: Male
  Weight: 103.99 kg

DRUGS (3)
  1. CLARITIN [Suspect]
     Active Substance: LORATADINE
     Dosage: 1 TABLET DAILY WITH FOOD
     Route: 048
     Dates: start: 20180406, end: 20180408
  2. SERTRALINE [Concomitant]
     Active Substance: SERTRALINE HYDROCHLORIDE
     Dosage: UNK
  3. METFORMIN [Concomitant]
     Active Substance: METFORMIN HYDROCHLORIDE
     Dosage: UNK

REACTIONS (6)
  - Sneezing [Unknown]
  - Lacrimation increased [Unknown]
  - Rhinorrhoea [Unknown]
  - Product use issue [Unknown]
  - Product use in unapproved indication [None]
  - Drug ineffective [Unknown]

NARRATIVE: CASE EVENT DATE: 20180406
